FAERS Safety Report 25430284 (Version 1)
Quarter: 2025Q2

REPORT INFORMATION
  Report Type: Spontaneous
  Country: AU (occurrence: AU)
  Receive Date: 20250612
  Receipt Date: 20250612
  Transmission Date: 20250717
  Serious: Yes (Other)
  Sender: GILEAD
  Company Number: AU-GILEAD-2025-0716884

PATIENT
  Age: 53 Year

DRUGS (1)
  1. YESCARTA [Suspect]
     Active Substance: AXICABTAGENE CILOLEUCEL
     Indication: Follicular lymphoma
     Route: 065

REACTIONS (1)
  - Follicular lymphoma [Unknown]
